FAERS Safety Report 9970468 (Version 1)
Quarter: 2014Q1

REPORT INFORMATION
  Report Type: Spontaneous
  Country: US (occurrence: None)
  Receive Date: 20140304
  Receipt Date: 20140304
  Transmission Date: 20141002
  Serious: Yes (Hospitalization)
  Sender: FDA-Public Use
  Company Number: 2014P1001658

PATIENT
  Age: 68 Year
  Sex: Male

DRUGS (1)
  1. SULFAMETHOXAZOLE AND TRIMETHORPIM [Suspect]
     Indication: FURUNCLE

REACTIONS (6)
  - Pharyngitis [None]
  - Dysphagia [None]
  - Odynophagia [None]
  - Dysphonia [None]
  - Oral candidiasis [None]
  - Agranulocytosis [None]
